FAERS Safety Report 15791800 (Version 1)
Quarter: 2019Q1

REPORT INFORMATION
  Report Type: Spontaneous
  Country: US (occurrence: US)
  Receive Date: 20190105
  Receipt Date: 20190105
  Transmission Date: 20190417
  Serious: No
  Sender: FDA-Public Use
  Company Number: US-TEVA-2018-US-986736

PATIENT
  Age: 56 Year
  Sex: Female

DRUGS (2)
  1. TORASEMIDE [Suspect]
     Active Substance: TORSEMIDE
  2. TORASEMIDE [Suspect]
     Active Substance: TORSEMIDE
     Indication: OEDEMA
     Dates: start: 20181203

REACTIONS (1)
  - Drug ineffective [Unknown]

NARRATIVE: CASE EVENT DATE: 20181203
